FAERS Safety Report 4749496-6 (Version None)
Quarter: 2005Q3

REPORT INFORMATION
  Report Type: 
  Country: None (occurrence: None)
  Receive Date: 20050819
  Receipt Date: 20050803
  Transmission Date: 20060218
  Serious: Yes (Hospitalization)
  Sender: FDA-Public Use
  Company Number: TRP_0239_2005

PATIENT
  Age: 37 Year
  Sex: Female

DRUGS (9)
  1. RIBASPHERE [Suspect]
     Indication: HEPATITIS C
     Dosage: DF PO
     Route: 048
     Dates: start: 20050420
  2. PEG-INTRON [Suspect]
     Indication: HEPATITIS C
     Dosage: DF SC
     Route: 058
     Dates: start: 20050420
  3. ACIPHEX [Concomitant]
  4. AMBIEN [Concomitant]
  5. LEXAPRO [Concomitant]
  6. MOTRIN [Concomitant]
  7. PHENERGAN ^AVENTIS PHARMA^ [Concomitant]
  8. RISPERDAL [Concomitant]
  9. XANAX [Concomitant]

REACTIONS (5)
  - DEPRESSION [None]
  - HEADACHE [None]
  - MIGRAINE [None]
  - SUICIDAL IDEATION [None]
  - VOMITING [None]
